FAERS Safety Report 19711296 (Version 1)
Quarter: 2021Q3

REPORT INFORMATION
  Report Type: Spontaneous
  Country: US (occurrence: US)
  Receive Date: 20210816
  Receipt Date: 20210816
  Transmission Date: 20211014
  Serious: No
  Sender: FDA-Public Use
  Company Number: US-INSUD PHARMA-2108US00873

PATIENT

DRUGS (1)
  1. SLYND [Suspect]
     Active Substance: DROSPIRENONE
     Indication: PRODUCT USED FOR UNKNOWN INDICATION
     Dosage: 4 MG DAILY
     Route: 048
     Dates: start: 20210530, end: 20210710

REACTIONS (5)
  - Migraine [Not Recovered/Not Resolved]
  - Heavy menstrual bleeding [Recovered/Resolved]
  - Polymenorrhoea [Recovered/Resolved]
  - Headache [Not Recovered/Not Resolved]
  - Acne [Recovered/Resolved]

NARRATIVE: CASE EVENT DATE: 20210531
